FAERS Safety Report 9959645 (Version 1)
Quarter: 2014Q1

REPORT INFORMATION
  Report Type: Report from Study
  Country: US (occurrence: US)
  Receive Date: 20140305
  Receipt Date: 20140305
  Transmission Date: 20141002
  Serious: No
  Sender: FDA-Public Use
  Company Number: US-ABBVIE-13P-163-1101020-00

PATIENT
  Age: 43 Year
  Sex: Female

DRUGS (6)
  1. HUMIRA [Suspect]
     Indication: RHEUMATOID ARTHRITIS
     Dates: start: 201212, end: 201212
  2. HUMIRA [Suspect]
     Dates: start: 20130527
  3. PLAQUENIL [Concomitant]
     Indication: RHEUMATOID ARTHRITIS
     Dosage: 400 MG DAILY
  4. HYDROCODONE [Concomitant]
     Indication: PAIN
     Dosage: 4 TIMES DAILY AS NEEDED
  5. VERAPAMIL [Concomitant]
     Indication: MIGRAINE PROPHYLAXIS
     Dosage: 180 MG DAILY
  6. IBUPROFEN [Concomitant]
     Indication: MIGRAINE PROPHYLAXIS

REACTIONS (4)
  - Injection site bruising [Recovered/Resolved]
  - Headache [Not Recovered/Not Resolved]
  - Injection site bruising [Not Recovered/Not Resolved]
  - Injection site reaction [Not Recovered/Not Resolved]
